FAERS Safety Report 5083998-0 (Version None)
Quarter: 2006Q3

REPORT INFORMATION
  Report Type: 
  Country: None (occurrence: None)
  Receive Date: 20060814
  Receipt Date: 20060804
  Transmission Date: 20061208
  Serious: No
  Sender: FDA-Public Use
  Company Number: 2006-145603-NL

PATIENT
  Age: 42 Year
  Sex: Female

DRUGS (2)
  1. MIRTAZAPINE [Suspect]
     Indication: DEPRESSION
     Dosage: 15 MG/30 MG, ORAL
     Route: 048
     Dates: start: 20060706, end: 20060710
  2. MIRTAZAPINE [Suspect]
     Indication: DEPRESSION
     Dosage: 15 MG/30 MG, ORAL
     Route: 048
     Dates: start: 20060710, end: 20060720

REACTIONS (7)
  - AGITATION [None]
  - ARTHRALGIA [None]
  - BIPOLAR DISORDER [None]
  - JOINT SWELLING [None]
  - MANIA [None]
  - MYALGIA [None]
  - THINKING ABNORMAL [None]
